FAERS Safety Report 6261139-1 (Version None)
Quarter: 2009Q3

REPORT INFORMATION
  Report Type: 
  Country: None (occurrence: None)
  Receive Date: 20090707
  Receipt Date: 20090630
  Transmission Date: 20100115
  Serious: Yes (Other)
  Sender: FDA-Public Use
  Company Number: IPS_01704_2009

PATIENT
  Sex: Female

DRUGS (6)
  1. APOKYN [Suspect]
     Indication: PARKINSON'S DISEASE
     Dosage: 0.7 ML, FIVE TO SIX TIMES DAILY SUBCUTANEOUS
     Route: 058
     Dates: start: 20070701
  2. APOKYN [Suspect]
     Indication: PARKINSON'S DISEASE
     Dosage: 0.3 ML TID, [UP TO FOUR TIMES PER DAY] SUBCUTANEOUS
     Route: 058
  3. SINEMET [Concomitant]
  4. REQUIP [Concomitant]
  5. LORAZEPAM [Concomitant]
  6. AZILECT /01759902/ [Concomitant]

REACTIONS (2)
  - DYSKINESIA [None]
  - FACIAL PALSY [None]
